FAERS Safety Report 5218983-9 (Version None)
Quarter: 2007Q1

REPORT INFORMATION
  Report Type: 
  Country: None (occurrence: None)
  Receive Date: 20070125
  Receipt Date: 20070115
  Transmission Date: 20070707
  Serious: Yes (Other)
  Sender: FDA-Public Use
  Company Number: PHFR2006GB03308

PATIENT
  Age: 15 Year
  Sex: Male

DRUGS (2)
  1. RITALIN [Suspect]
     Indication: ATTENTION DEFICIT/HYPERACTIVITY DISORDER
     Dosage: 5 MG, BID
     Route: 048
     Dates: start: 20061003, end: 20061005
  2. CONCERTA [Suspect]
     Dosage: 18 MG, QD
     Route: 048
     Dates: start: 20061004, end: 20061004

REACTIONS (9)
  - ANXIETY [None]
  - DISTURBANCE IN ATTENTION [None]
  - DIZZINESS [None]
  - FATIGUE [None]
  - HALLUCINATION, AUDITORY [None]
  - PANIC REACTION [None]
  - POLLAKIURIA [None]
  - SOMNOLENCE [None]
  - THINKING ABNORMAL [None]
